FAERS Safety Report 10168516 (Version 1)
Quarter: 2014Q2

REPORT INFORMATION
  Report Type: Spontaneous
  Country: US (occurrence: US)
  Receive Date: 20140513
  Receipt Date: 20140513
  Transmission Date: 20141212
  Serious: Yes (Other)
  Sender: FDA-Public Use
  Company Number: US-PFIZER INC-2014128447

PATIENT
  Age: 67 Year
  Sex: Female
  Weight: 102 kg

DRUGS (1)
  1. SUTENT [Suspect]
     Dosage: 50 MG, 1X/DAY (QD X 4 WK)
     Route: 048
     Dates: start: 20140128

REACTIONS (8)
  - Blood pressure increased [Recovered/Resolved]
  - Headache [Recovered/Resolved]
  - Nausea [Unknown]
  - Vomiting [Unknown]
  - Fatigue [Unknown]
  - Dysgeusia [Unknown]
  - Oral pain [Unknown]
  - Contusion [Unknown]
